FAERS Safety Report 9692127 (Version 2)
Quarter: 2014Q1

REPORT INFORMATION
  Report Type: Spontaneous
  Country: US (occurrence: US)
  Receive Date: 20131118
  Receipt Date: 20140120
  Transmission Date: 20141002
  Serious: Yes (Hospitalization)
  Sender: FDA-Public Use
  Company Number: US-BIOGENIDEC-2013BI108668

PATIENT
  Age: 23 Year
  Sex: Female

DRUGS (4)
  1. TECFIDERA [Suspect]
     Indication: MULTIPLE SCLEROSIS
     Route: 048
     Dates: start: 201306
  2. ONDANSETRON [Concomitant]
  3. TOPIRAMATE [Concomitant]
  4. OMEPRAZOLE [Concomitant]

REACTIONS (3)
  - Crohn^s disease [Unknown]
  - Dyspepsia [Unknown]
  - Cholecystitis [Unknown]
